FAERS Safety Report 13156189 (Version 2)
Quarter: 2017Q1

REPORT INFORMATION
  Report Type: Report from Study
  Country: IL (occurrence: IL)
  Receive Date: 20170126
  Receipt Date: 20170210
  Transmission Date: 20170428
  Serious: No
  Sender: FDA-Public Use
  Company Number: IL-OTSUKA-2016_024901

PATIENT
  Age: 22 Year
  Sex: Male

DRUGS (4)
  1. CLONAZEPAM. [Concomitant]
     Active Substance: CLONAZEPAM
     Indication: ANXIETY
     Dosage: 0.5 MG, WHEN NEEDED
     Route: 065
     Dates: start: 20160918
  2. PROCYCLIDINE [Concomitant]
     Active Substance: PROCYCLIDINE
     Indication: PROPHYLAXIS
     Dosage: 5 MG, WHEN NEEDED
     Route: 065
     Dates: start: 2014
  3. ARIPIPRAZOLE. [Suspect]
     Active Substance: ARIPIPRAZOLE
     Indication: SCHIZOPHRENIA
     Dosage: STUDY DRUG NOT ADMINISTERED
     Route: 065
  4. BIPERIDEN [Concomitant]
     Active Substance: BIPERIDEN
     Indication: EXTRAPYRAMIDAL DISORDER
     Dosage: 2 MG, BID
     Route: 065
     Dates: start: 20160918

REACTIONS (1)
  - No adverse event [Unknown]
